FAERS Safety Report 22588773 (Version 1)
Quarter: 2023Q2

REPORT INFORMATION
  Report Type: Spontaneous
  Country: US (occurrence: US)
  Receive Date: 20230612
  Receipt Date: 20230612
  Transmission Date: 20230722
  Serious: Yes (Hospitalization)
  Sender: FDA-Public Use
  Company Number: US-drreddys-LIT/USA/23/0166460

PATIENT
  Age: 4 Year
  Sex: Male

DRUGS (6)
  1. IMATINIB MESYLATE [Suspect]
     Active Substance: IMATINIB MESYLATE
     Indication: Adenomatous polyposis coli
     Route: 048
  2. DOXORUBICIN HYDROCHLORIDE [Suspect]
     Active Substance: DOXORUBICIN HYDROCHLORIDE
     Indication: Adenomatous polyposis coli
  3. SORAFENIB [Suspect]
     Active Substance: SORAFENIB
     Indication: Adenomatous polyposis coli
  4. METHOTREXATE [Suspect]
     Active Substance: METHOTREXATE
     Indication: Adenomatous polyposis coli
  5. VINBLASTINE [Suspect]
     Active Substance: VINBLASTINE
     Indication: Adenomatous polyposis coli
  6. PAZOPANIB [Suspect]
     Active Substance: PAZOPANIB
     Indication: Adenomatous polyposis coli

REACTIONS (3)
  - Adenomatous polyposis coli [Unknown]
  - Neoplasm progression [Unknown]
  - Drug ineffective for unapproved indication [Unknown]
